FAERS Safety Report 26076156 (Version 1)
Quarter: 2025Q4

REPORT INFORMATION
  Report Type: Spontaneous
  Country: EU (occurrence: EU)
  Receive Date: 20251121
  Receipt Date: 20251121
  Transmission Date: 20260118
  Serious: Yes (Other)
  Sender: PFIZER
  Company Number: EU-PFIZER INC-PV202500135223

PATIENT
  Age: 77 Year
  Sex: Female

DRUGS (5)
  1. METHYLPREDNISOLONE SODIUM SUCCINATE [Suspect]
     Active Substance: METHYLPREDNISOLONE SODIUM SUCCINATE
     Indication: Hepatotoxicity
     Dosage: 2 MG/KG
     Route: 042
  2. PREDNISOLONE [Suspect]
     Active Substance: PREDNISOLONE
     Indication: Hepatotoxicity
     Dosage: 1 MG/KG (TAPERED OVER 5 WEEKS)
  3. PREDNISOLONE [Suspect]
     Active Substance: PREDNISOLONE
     Dosage: 2 MG/KG
  4. INFLIXIMAB [Suspect]
     Active Substance: INFLIXIMAB
     Indication: Hepatotoxicity
     Dosage: 5 MG/KG (ONE DOSE)
  5. INFLIXIMAB [Suspect]
     Active Substance: INFLIXIMAB
     Dosage: 2 MG/KG (SECOND DOSE)

REACTIONS (2)
  - Drug resistance [Unknown]
  - Off label use [Unknown]
